FAERS Safety Report 20447917 (Version 2)
Quarter: 2022Q1

REPORT INFORMATION
  Report Type: Spontaneous
  Country: US (occurrence: US)
  Receive Date: 20220209
  Receipt Date: 20220217
  Transmission Date: 20220423
  Serious: No
  Sender: FDA-Public Use
  Company Number: US-ELI_LILLY_AND_COMPANY-US202202000301

PATIENT
  Sex: Female

DRUGS (14)
  1. HUMULIN N [Suspect]
     Active Substance: INSULIN HUMAN
     Indication: Product used for unknown indication
     Dosage: 48 U, EACH MORNING
     Route: 065
     Dates: start: 2020
  2. HUMULIN N [Suspect]
     Active Substance: INSULIN HUMAN
     Indication: Product used for unknown indication
     Dosage: 48 U, EACH MORNING
     Route: 065
     Dates: start: 2020
  3. HUMULIN N [Suspect]
     Active Substance: INSULIN HUMAN
     Indication: Product used for unknown indication
     Dosage: 48 U, EACH MORNING
     Route: 065
     Dates: start: 2020
  4. HUMULIN N [Suspect]
     Active Substance: INSULIN HUMAN
     Dosage: 43 U, EACH EVENING
     Route: 065
     Dates: start: 2020
  5. HUMULIN N [Suspect]
     Active Substance: INSULIN HUMAN
     Dosage: 43 U, EACH EVENING
     Route: 065
     Dates: start: 2020
  6. HUMULIN N [Suspect]
     Active Substance: INSULIN HUMAN
     Dosage: 43 U, EACH EVENING
     Route: 065
     Dates: start: 2020
  7. HUMULIN N [Suspect]
     Active Substance: INSULIN HUMAN
     Dosage: 48 U, EACH MORNING
     Route: 065
  8. HUMULIN N [Suspect]
     Active Substance: INSULIN HUMAN
     Dosage: 48 U, EACH MORNING
     Route: 065
  9. HUMULIN N [Suspect]
     Active Substance: INSULIN HUMAN
     Dosage: 43 U, EACH EVENING
     Route: 065
  10. HUMULIN N [Suspect]
     Active Substance: INSULIN HUMAN
     Dosage: 43 U, EACH EVENING
     Route: 065
  11. HUMULIN N [Suspect]
     Active Substance: INSULIN HUMAN
     Dosage: 48 U, EACH MORNING
     Route: 065
  12. HUMULIN N [Suspect]
     Active Substance: INSULIN HUMAN
     Dosage: 48 U, EACH MORNING
     Route: 065
  13. HUMULIN N [Suspect]
     Active Substance: INSULIN HUMAN
     Dosage: 43 U, EACH EVENING
     Route: 065
  14. HUMULIN N [Suspect]
     Active Substance: INSULIN HUMAN
     Dosage: 43 U, EACH EVENING
     Route: 065

REACTIONS (3)
  - Blood glucose decreased [Unknown]
  - Fatigue [Unknown]
  - Somnolence [Unknown]
